FAERS Safety Report 11823667 (Version 2)
Quarter: 2016Q1

REPORT INFORMATION
  Report Type: Spontaneous
  Country: DK (occurrence: DK)
  Receive Date: 20151210
  Receipt Date: 20160120
  Transmission Date: 20160525
  Serious: Yes (Life-Threatening, Hospitalization)
  Sender: FDA-Public Use
  Company Number: DK-PFIZER INC-2015422858

PATIENT
  Sex: Female

DRUGS (9)
  1. FOLIMET [Concomitant]
     Dosage: 5 MG, QD
     Route: 048
     Dates: start: 20120621
  2. KALEORID [Concomitant]
     Active Substance: POTASSIUM CHLORIDE
     Dosage: 0.750 MG, QD
     Route: 048
     Dates: start: 20150722, end: 20151024
  3. INC424 [Suspect]
     Active Substance: RUXOLITINIB
     Dosage: 15 MG, BID
     Route: 065
     Dates: start: 2012, end: 20151022
  4. INC424 [Suspect]
     Active Substance: RUXOLITINIB
     Indication: MYELOFIBROSIS
     Dosage: 20 MG, BID
     Route: 065
     Dates: start: 20120823
  5. ACETYLSALICYLIC ACID [Concomitant]
     Active Substance: ASPIRIN
     Dosage: UNK
     Route: 065
     Dates: end: 201508
  6. BISOPROLOL [Concomitant]
     Active Substance: BISOPROLOL
     Dosage: 5 MG, QD
     Route: 048
     Dates: start: 20111115
  7. FRAGMIN [Suspect]
     Active Substance: DALTEPARIN SODIUM
     Indication: VENOUS THROMBOSIS
     Dosage: 7500 OT, BID
     Route: 058
     Dates: start: 20150827, end: 20151020
  8. ALLOPURINOL. [Concomitant]
     Active Substance: ALLOPURINOL
     Dosage: 300 MG, QD
     Route: 048
     Dates: start: 20111115
  9. ARANESP [Concomitant]
     Active Substance: DARBEPOETIN ALFA
     Indication: ERYTHROPOIESIS ABNORMAL
     Dosage: 300 UG, QW
     Route: 058
     Dates: start: 20151008

REACTIONS (10)
  - Fall [Unknown]
  - Oedema [Unknown]
  - Ecchymosis [Unknown]
  - Retroperitoneal haematoma [Recovering/Resolving]
  - Dizziness [Unknown]
  - Weight increased [Unknown]
  - Venous thrombosis [Unknown]
  - Dyspnoea [Unknown]
  - Haemoglobin decreased [Unknown]
  - Haematoma [Recovering/Resolving]

NARRATIVE: CASE EVENT DATE: 201508
